FAERS Safety Report 8079812-1 (Version None)
Quarter: 2012Q1

REPORT INFORMATION
  Report Type: 
  Country: None (occurrence: None)
  Receive Date: 20120128
  Receipt Date: 20110831
  Transmission Date: 20120608
  Serious: No
  Sender: FDA-Public Use
  Company Number: US-ABBOTT-11P-163-0850796-00

PATIENT
  Age: 51 Year
  Sex: Male

DRUGS (3)
  1. MICARDIS [Concomitant]
     Indication: PRODUCT USED FOR UNKNOWN INDICATION
  2. HUMIRA [Suspect]
     Indication: PSORIASIS
     Dates: start: 20110601
  3. CARVEDILOL [Concomitant]
     Indication: PRODUCT USED FOR UNKNOWN INDICATION

REACTIONS (1)
  - BLOOD CHOLESTEROL INCREASED [None]
